FAERS Safety Report 23222662 (Version 1)
Quarter: 2023Q4

REPORT INFORMATION
  Report Type: Spontaneous
  Country: DE (occurrence: DE)
  Receive Date: 20231123
  Receipt Date: 20231123
  Transmission Date: 20240109
  Serious: Yes (Death, Other)
  Sender: FDA-Public Use
  Company Number: DE-KYOWAKIRIN-2000AKK302363AA

PATIENT
  Age: 0 Year
  Sex: Female

DRUGS (64)
  1. ACETYLCYSTEINE [Suspect]
     Active Substance: ACETYLCYSTEINE
     Indication: Mucositis management
     Dosage: UNK UNK, QD
     Route: 040
     Dates: start: 19990502
  2. ACTRAPID [Suspect]
     Active Substance: INSULIN HUMAN
     Indication: Hyperglycaemia
     Dosage: UNK UNK, QD
     Route: 040
     Dates: start: 19990517, end: 19990517
  3. ALBUMIN HUMAN [Suspect]
     Active Substance: ALBUMIN HUMAN
     Indication: Hypoalbuminaemia
     Dosage: 250 ML
     Route: 040
     Dates: start: 19990516, end: 19990516
  4. AMPHOTERICIN B [Suspect]
     Active Substance: AMPHOTERICIN B
     Indication: Candida infection
     Dosage: UNK UNK, QD
     Route: 040
     Dates: start: 19990430
  5. NOREPINEPHRINE HYDROCHLORIDE, (+/-)- [Suspect]
     Active Substance: NOREPINEPHRINE HYDROCHLORIDE, (+/-)-
     Indication: Cardiovascular disorder
     Dosage: UNK UNK, QD
     Route: 040
     Dates: start: 19990521, end: 19990521
  6. ATROVENT [Suspect]
     Active Substance: IPRATROPIUM BROMIDE
     Indication: Respiratory failure
     Dosage: UNK
     Route: 055
     Dates: start: 19990521, end: 19990521
  7. THEOPHYLLINE ANHYDROUS [Suspect]
     Active Substance: THEOPHYLLINE ANHYDROUS
     Indication: Dyspnoea
     Dosage: 40 MG
     Route: 065
     Dates: start: 19990519, end: 19990519
  8. NYSTATIN [Suspect]
     Active Substance: NYSTATIN
     Indication: Candida infection
     Dosage: 12 MILLILITER, UNCLEAR WHETHER ADMINISTERED 3 OR 4
     Route: 048
     Dates: start: 19990516, end: 19990523
  9. GANCICLOVIR [Suspect]
     Active Substance: GANCICLOVIR
     Indication: Prophylaxis
     Dosage: UNK UNK, QD
     Route: 040
     Dates: start: 19990519
  10. DEXPANTHENOL [Suspect]
     Active Substance: DEXPANTHENOL
     Indication: Bronchospasm
     Dosage: UNK
     Route: 055
     Dates: start: 19990519, end: 19990520
  11. PROPOFOL [Suspect]
     Active Substance: PROPOFOL
     Indication: Anaesthesia
     Dosage: 15 ML
     Route: 040
     Dates: start: 19990521, end: 19990521
  12. ERYTHROMYCIN [Suspect]
     Active Substance: ERYTHROMYCIN
     Indication: Pneumonia
     Dosage: 1500 MG, QD
     Route: 040
     Dates: start: 19990517
  13. FUROSEMIDE [Suspect]
     Active Substance: FUROSEMIDE
     Indication: Oedema
     Dosage: UNK
     Route: 065
     Dates: start: 19990428, end: 19990506
  14. FILGRASTIM [Suspect]
     Active Substance: FILGRASTIM
     Dosage: 700 UG
     Route: 065
     Dates: start: 19990521, end: 19990521
  15. FILGRASTIM [Suspect]
     Active Substance: FILGRASTIM
     Indication: Neutropenia
     Dosage: UNK
     Route: 065
     Dates: start: 19900429
  16. CEFTAZIDIME [Suspect]
     Active Substance: CEFTAZIDIME
     Indication: Pneumonia
     Dosage: 4 G, QD
     Route: 040
     Dates: start: 19990503, end: 19990517
  17. ISOPROMETHAZINE HYDROCHLORIDE [Suspect]
     Active Substance: ISOPROMETHAZINE HYDROCHLORIDE
     Indication: Product used for unknown indication
     Dosage: 25 MG, QD
     Route: 040
     Dates: start: 19990518, end: 19990520
  18. BROMAZEPAM [Suspect]
     Active Substance: BROMAZEPAM
     Indication: Restlessness
     Dosage: 3 MG
     Route: 048
     Dates: start: 19990423, end: 19990505
  19. MORPHINE [Suspect]
     Active Substance: MORPHINE
     Indication: Pain
     Dosage: 0.5 MG
     Route: 040
     Dates: start: 19990501, end: 19990520
  20. METHOTREXATE SODIUM [Suspect]
     Active Substance: METHOTREXATE SODIUM
     Indication: Prophylaxis against transplant rejection
     Dosage: UNK
     Route: 040
     Dates: start: 19990429, end: 19990501
  21. NOVALGINA [Suspect]
     Active Substance: ACETAMINOPHEN\CAFFEINE
     Indication: Pain
     Dosage: UNK
     Route: 040
     Dates: start: 19990427, end: 19990516
  22. OFLOXACIN [Suspect]
     Active Substance: OFLOXACIN
     Indication: Pneumonia bacterial
     Dosage: 400 MG, QD
     Route: 040
     Dates: start: 19990428, end: 19990503
  23. PLASMA PROTEIN FRACTION (HUMAN) [Suspect]
     Active Substance: PLASMA PROTEIN FRACTION (HUMAN)
     Indication: Product used for unknown indication
     Dosage: UNK UNK, QD
     Route: 040
     Dates: start: 19990519, end: 19990519
  24. ALPROSTADIL ALFADEX [Suspect]
     Active Substance: ALPROSTADIL ALFADEX
     Indication: Poor peripheral circulation
     Dosage: UNK
     Route: 040
     Dates: start: 19990503, end: 19990521
  25. SUFENTANIL CITRATE [Suspect]
     Active Substance: SUFENTANIL CITRATE
     Indication: Anaesthesia
     Dosage: 3 ML
     Route: 065
     Dates: start: 19990521, end: 19990521
  26. SULTANOL [Suspect]
     Active Substance: ALBUTEROL SULFATE
     Indication: Bronchospasm
     Dosage: UNK UNK, QD
     Route: 055
     Dates: start: 19990519
  27. TOBRAMYCIN [Suspect]
     Active Substance: TOBRAMYCIN
     Indication: Pneumonia
     Dosage: UNK
     Route: 040
     Dates: start: 19990511
  28. TARGOCID [Suspect]
     Active Substance: TEICOPLANIN
     Indication: Pneumonia
     Dosage: 400 MG, QD
     Route: 040
     Dates: start: 19990503
  29. ATORVASTATIN CALCIUM [Suspect]
     Active Substance: ATORVASTATIN CALCIUM
     Indication: Restlessness
     Dosage: 1 MG
     Route: 040
     Dates: start: 19990520, end: 19990520
  30. THEOPHYLLINE [Suspect]
     Active Substance: THEOPHYLLINE
     Indication: Bronchospasm
     Dosage: 4 ML
     Route: 040
     Dates: start: 19990519, end: 19990520
  31. THEOPHYLLINE SODIUM GLYCINATE [Suspect]
     Active Substance: THEOPHYLLINE SODIUM GLYCINATE
     Indication: Respiratory failure
     Dosage: 400 MG
     Route: 040
     Dates: start: 19990520, end: 19990520
  32. TRIFLUSAL [Suspect]
     Active Substance: TRIFLUSAL
     Indication: Metabolic acidosis
     Dosage: UNK
     Route: 065
     Dates: start: 19990518, end: 19990518
  33. METHYLPREDNISOLONE [Suspect]
     Active Substance: METHYLPREDNISOLONE
     Indication: Prophylaxis against graft versus host disease
     Dosage: UNK
     Route: 040
     Dates: start: 19990425, end: 19990507
  34. VANCOMYCIN [Suspect]
     Active Substance: VANCOMYCIN
     Indication: Pneumonia
     Dosage: 1 G
     Route: 040
     Dates: start: 19990521, end: 19990521
  35. DOXYCYCLINE [Suspect]
     Active Substance: DOXYCYCLINE
     Indication: Pneumonia
     Dosage: UNK
     Route: 048
     Dates: start: 19990518, end: 19990519
  36. CILASTATIN SODIUM\IMIPENEM [Suspect]
     Active Substance: CILASTATIN SODIUM\IMIPENEM
     Indication: Pneumonia
     Dosage: 1500 MG, QD
     Route: 040
     Dates: start: 19990517
  37. LAPINE T-LYMPHOCYTE IMMUNE GLOBULIN [Concomitant]
     Active Substance: LAPINE T-LYMPHOCYTE IMMUNE GLOBULIN
     Indication: Bone marrow transplant
     Dosage: UNK UNK, QD
     Route: 065
     Dates: start: 19990427, end: 19990427
  38. CALCIUM GLUCONATE [Concomitant]
     Active Substance: CALCIUM GLUCONATE
     Indication: Hypocalcaemia
     Dosage: 20 ML
     Route: 065
     Dates: start: 19990429, end: 19990508
  39. Clont [Concomitant]
     Indication: Pneumonia bacterial
     Dosage: 1500 MG, QD
     Route: 065
  40. DEXAMETHASONE [Concomitant]
     Active Substance: DEXAMETHASONE
     Indication: Bone marrow transplant
     Dosage: 24 MG, QD
     Route: 065
     Dates: start: 19990424, end: 19990426
  41. AMINO ACIDS, SOURCE UNSPECIFIED [Concomitant]
     Active Substance: AMINO ACIDS, SOURCE UNSPECIFIED
     Indication: Nutritional supplementation
     Dosage: 100 ML
     Route: 065
  42. CYCLOPHOSPHAMIDE [Concomitant]
     Active Substance: CYCLOPHOSPHAMIDE
     Indication: Bone marrow transplant
     Dosage: 4260 MG, QD
     Route: 065
     Dates: start: 19990425, end: 19990426
  43. DEXTROSE [Concomitant]
     Active Substance: DEXTROSE\DEXTROSE MONOHYDRATE
     Indication: Nutritional supplementation
     Dosage: UNK
     Route: 065
     Dates: start: 19990424
  44. HEPARIN [Concomitant]
     Active Substance: HEPARIN SODIUM
     Indication: Thrombosis prophylaxis
     Dosage: 18000 IU
     Route: 065
     Dates: start: 19990427
  45. MAGNESIUM ASPARTATE\POTASSIUM ASPARTATE [Concomitant]
     Active Substance: MAGNESIUM ASPARTATE\POTASSIUM ASPARTATE
     Indication: Nutritional supplementation
     Dosage: 10 ML
     Route: 065
  46. KCL [Concomitant]
     Active Substance: POTASSIUM CHLORIDE
     Indication: Hypokalaemia
     Dosage: UNK
     Route: 065
     Dates: start: 19990424
  47. KONAKION [Concomitant]
     Active Substance: PHYTONADIONE
     Indication: Vitamin K deficiency
     Dosage: 10 MG
     Route: 065
     Dates: start: 19900426, end: 19900517
  48. MAGNESIUM [Concomitant]
     Active Substance: MAGNESIUM
     Indication: Hypomagnesaemia
     Dosage: UNK
     Route: 065
     Dates: start: 19990429, end: 19990513
  49. MYLERAN [Concomitant]
     Active Substance: BUSULFAN
     Indication: Bone marrow transplant
     Dosage: 284 MG, QD
     Route: 065
     Dates: start: 19990423, end: 19990423
  50. SODIUM CHLORIDE [Concomitant]
     Active Substance: SODIUM CHLORIDE
     Indication: Hyponatraemia
     Dosage: 50 ML
     Route: 065
     Dates: start: 19990429, end: 19990505
  51. SODIUM BICARBONATE [Concomitant]
     Active Substance: SODIUM BICARBONATE
     Indication: Product used for unknown indication
     Dosage: UNK
     Route: 065
     Dates: start: 19990517, end: 19990517
  52. OCTAGAM IMMUNE GLOBULIN (HUMAN) [Concomitant]
     Active Substance: HUMAN IMMUNOGLOBULIN G
     Indication: Bone marrow transplant
     Dosage: UNK
     Route: 065
     Dates: start: 19990419, end: 19990429
  53. PENTACARINAT [Concomitant]
     Active Substance: PENTAMIDINE ISETHIONATE
     Indication: Pneumonia
     Dosage: 300 MG (INHALATION VAPOUR, SOLUTION)
     Route: 065
     Dates: start: 19990425
  54. FAMOTIDINE [Concomitant]
     Active Substance: FAMOTIDINE
     Indication: Prophylaxis against gastrointestinal ulcer
     Dosage: 40 MG, QD
     Route: 065
     Dates: start: 19990502
  55. PHENYTOIN [Concomitant]
     Active Substance: PHENYTOIN
     Indication: Prophylaxis
     Dosage: 400 MG, QD
     Route: 048
     Dates: start: 19990419, end: 19990427
  56. CYCLOSPORINE [Concomitant]
     Active Substance: CYCLOSPORINE
     Indication: Bone marrow transplant
     Dosage: UNK
     Route: 065
     Dates: start: 19990421, end: 19990427
  57. SEMPERA [Concomitant]
     Active Substance: ITRACONAZOLE
     Indication: Fungal infection
     Dosage: 200 MG
     Route: 065
     Dates: start: 19990429
  58. VITAMINS [Concomitant]
     Active Substance: VITAMINS
     Indication: Nutritional supplementation
     Dosage: UNK
     Route: 065
  59. CLEMASTINE FUMARATE [Concomitant]
     Active Substance: CLEMASTINE FUMARATE
     Indication: Pruritus
     Dosage: UNK UNK, QD
     Route: 065
     Dates: start: 19990524
  60. MESNA [Concomitant]
     Active Substance: MESNA
     Indication: Prophylaxis
     Dosage: UNK
     Route: 065
     Dates: start: 19990425, end: 19990426
  61. VITINTRA [Concomitant]
     Active Substance: ERGOCALCIFEROL\PHYTONADIONE\RETINOL\VITAMIN A PALMITATE
     Indication: Nutritional supplementation
     Dosage: UNK
     Route: 065
  62. ETOPOSIDE [Concomitant]
     Active Substance: ETOPOSIDE
     Indication: Bone marrow transplant
     Dosage: 2130 MG
     Route: 065
     Dates: start: 19990424, end: 19990424
  63. ZOFRAN [Concomitant]
     Active Substance: ONDANSETRON HYDROCHLORIDE
     Indication: Nausea
     Dosage: UNK
     Route: 065
  64. ZOVIRAX [Concomitant]
     Active Substance: ACYCLOVIR
     Indication: Prophylaxis
     Dosage: UNK
     Route: 065
     Dates: start: 19990419, end: 19990426

REACTIONS (2)
  - Stevens-Johnson syndrome [Fatal]
  - Toxic epidermal necrolysis [Unknown]

NARRATIVE: CASE EVENT DATE: 19990521
